FAERS Safety Report 4745834-9 (Version None)
Quarter: 2005Q3

REPORT INFORMATION
  Report Type: 
  Country: None (occurrence: None)
  Receive Date: 20050816
  Receipt Date: 20050804
  Transmission Date: 20060218
  Serious: Yes (Other)
  Sender: FDA-Public Use
  Company Number: US-JNJFOC-20050801251

PATIENT
  Sex: Male
  Weight: 91.63 kg

DRUGS (19)
  1. INFLIXIMAB [Suspect]
     Indication: RHEUMATOID ARTHRITIS
     Route: 042
  2. ASPIRIN [Concomitant]
  3. CALCIUM GLUCONATE [Concomitant]
  4. DIOVAN [Concomitant]
  5. METHOTREXATE [Concomitant]
  6. OMEPRAZOLE [Concomitant]
  7. TYLENOL (CAPLET) [Concomitant]
  8. GLUCOSAMINE/CHONDROITIN [Concomitant]
  9. GLUCOSAMINE/CHONDROITIN [Concomitant]
  10. GLUCOSAMINE/CHONDROITIN [Concomitant]
  11. GLUCOSAMINE/CHONDROITIN [Concomitant]
  12. MULTI-VITAMINS [Concomitant]
  13. MULTI-VITAMINS [Concomitant]
  14. MULTI-VITAMINS [Concomitant]
  15. MULTI-VITAMINS [Concomitant]
  16. MULTI-VITAMINS [Concomitant]
  17. MULTI-VITAMINS [Concomitant]
  18. MULTI-VITAMINS [Concomitant]
  19. MULTI-VITAMINS [Concomitant]

REACTIONS (1)
  - PROSTATE CANCER [None]
